FAERS Safety Report 25417831 (Version 2)
Quarter: 2025Q2

REPORT INFORMATION
  Report Type: Spontaneous
  Country: RU (occurrence: RU)
  Receive Date: 20250610
  Receipt Date: 20250619
  Transmission Date: 20250717
  Serious: Yes (Life-Threatening)
  Sender: AMERICAN REGENT
  Company Number: RU-AMERICAN REGENT INC-2025002336

PATIENT
  Age: 39 Year
  Sex: Female
  Weight: 53 kg

DRUGS (2)
  1. VENOFER [Suspect]
     Active Substance: IRON SUCROSE
     Indication: Product used for unknown indication
     Route: 065
  2. VENOFER [Suspect]
     Active Substance: IRON SUCROSE
     Dates: start: 20250126, end: 20250126

REACTIONS (7)
  - Joint range of motion decreased [Recovered/Resolved]
  - Dizziness [Recovered/Resolved]
  - Peripheral swelling [Recovered/Resolved]
  - Paraesthesia [Recovered/Resolved]
  - Back pain [Recovered/Resolved]
  - Lip swelling [Unknown]
  - Asthenia [Unknown]

NARRATIVE: CASE EVENT DATE: 20250126
